FAERS Safety Report 26135408 (Version 1)
Quarter: 2025Q4

REPORT INFORMATION
  Report Type: Spontaneous
  Country: US (occurrence: US)
  Receive Date: 20251209
  Receipt Date: 20251209
  Transmission Date: 20260117
  Serious: No
  Sender: NOVEN
  Company Number: US-NOVEN PHARMACEUTICALS, INC.-2025-NOV-US001173

PATIENT
  Age: 59 Year
  Sex: Female

DRUGS (6)
  1. ESTRADIOL [Suspect]
     Active Substance: ESTRADIOL
     Indication: Off label use
     Dosage: 0.025 MG, UNKNOWN
     Route: 062
     Dates: start: 202504
  2. ESTRADIOL [Suspect]
     Active Substance: ESTRADIOL
     Indication: Memory impairment
  3. ESTRADIOL [Suspect]
     Active Substance: ESTRADIOL
     Indication: Fatigue
  4. ESTRADIOL [Suspect]
     Active Substance: ESTRADIOL
     Indication: Metabolic disorder
  5. ESTRADIOL [Suspect]
     Active Substance: ESTRADIOL
     Indication: Asthenia
  6. ESTRADIOL [Suspect]
     Active Substance: ESTRADIOL
     Indication: Disturbance in attention

REACTIONS (3)
  - Device difficult to use [Not Recovered/Not Resolved]
  - Off label use [Not Recovered/Not Resolved]
  - No adverse event [Unknown]

NARRATIVE: CASE EVENT DATE: 20250401
